FAERS Safety Report 14121487 (Version 1)
Quarter: 2017Q4

REPORT INFORMATION
  Report Type: Spontaneous
  Country: US (occurrence: US)
  Receive Date: 20171024
  Receipt Date: 20171024
  Transmission Date: 20180321
  Serious: No
  Sender: FDA-Public Use
  Company Number: US-MYLANLABS-2017M1061153

PATIENT
  Age: 48 Year
  Sex: Female

DRUGS (6)
  1. METHIMAZOLE TABLETS, USP [Suspect]
     Active Substance: METHIMAZOLE
     Indication: THYROID DISORDER
     Dosage: 10 MG, BID
     Route: 048
  2. PYRIDOSTIGMINE [Concomitant]
     Active Substance: PYRIDOSTIGMINE
     Indication: MYASTHENIA GRAVIS
     Dosage: 30 MG, BID (IN THE MORNING AND AFTERNOON)
  3. TIZANIDINE. [Concomitant]
     Active Substance: TIZANIDINE
     Indication: MUSCLE SPASTICITY
     Dosage: 2 MG, TID
  4. VITAMINS NOS [Concomitant]
     Active Substance: VITAMINS
     Indication: PRODUCT USED FOR UNKNOWN INDICATION
     Dosage: UNK
  5. MINERALS [Concomitant]
     Active Substance: MINERALS
     Indication: PRODUCT USED FOR UNKNOWN INDICATION
     Dosage: UNK
  6. METHIMAZOLE TABLETS, USP [Suspect]
     Active Substance: METHIMAZOLE
     Dosage: 20 MG, BID
     Route: 048

REACTIONS (3)
  - Diarrhoea [Unknown]
  - Skin swelling [Unknown]
  - Thyroid hormones increased [Unknown]
